FAERS Safety Report 23334123 (Version 1)
Quarter: 2023Q4

REPORT INFORMATION
  Report Type: Report from Study
  Country: MX (occurrence: MX)
  Receive Date: 20231223
  Receipt Date: 20231223
  Transmission Date: 20240110
  Serious: Yes (Hospitalization)
  Sender: FDA-Public Use
  Company Number: MX-BoehringerIngelheim-2023-BI-248921

PATIENT
  Age: 62 Year
  Sex: Female

DRUGS (1)
  1. JARDIANCE [Suspect]
     Active Substance: EMPAGLIFLOZIN
     Indication: Type 2 diabetes mellitus
     Route: 048
     Dates: start: 20230601

REACTIONS (19)
  - Blood triglycerides increased [Unknown]
  - Blood glucose decreased [Recovered/Resolved]
  - Blood glucose increased [Recovered/Resolved]
  - Dizziness [Recovered/Resolved]
  - Hypertension [Recovered/Resolved]
  - Tremor [Recovered/Resolved]
  - Blood cholesterol increased [Unknown]
  - Hunger [Unknown]
  - Tremor [Unknown]
  - Feeling drunk [Unknown]
  - Hypoaesthesia [Unknown]
  - Muscular weakness [Recovered/Resolved]
  - Dizziness [Recovered/Resolved with Sequelae]
  - Tremor [Recovered/Resolved]
  - Pain in extremity [Unknown]
  - Hypoaesthesia [Unknown]
  - Blood glucose decreased [Recovered/Resolved]
  - Peripheral swelling [Unknown]
  - Blood glucose increased [Unknown]

NARRATIVE: CASE EVENT DATE: 20230710
